FAERS Safety Report 5727575-4 (Version None)
Quarter: 2008Q2

REPORT INFORMATION
  Report Type: 
  Country: None (occurrence: None)
  Receive Date: 20080428
  Receipt Date: 20070913
  Transmission Date: 20081010
  Serious: Yes (Hospitalization)
  Sender: FDA-Public Use
  Company Number: 159514USA

PATIENT
  Sex: Female

DRUGS (3)
  1. NASAREL [Suspect]
     Indication: SINUS DISORDER
     Dosage: (0.025 %),NASAL
     Route: 045
     Dates: end: 20070701
  2. BUDESONIDE [Suspect]
     Dosage: RESPIRATORY(INHALATION)
     Route: 055
  3. ALBUTEROL [Suspect]

REACTIONS (3)
  - DRUG INEFFECTIVE [None]
  - MALAISE [None]
  - SINUS DISORDER [None]
